FAERS Safety Report 14457400 (Version 1)
Quarter: 2018Q1

REPORT INFORMATION
  Report Type: Spontaneous
  Country: US (occurrence: US)
  Receive Date: 20180130
  Receipt Date: 20180130
  Transmission Date: 20180509
  Serious: No
  Sender: FDA-Public Use
  Company Number: US-PFIZER INC-2018033388

PATIENT
  Age: 63 Year
  Sex: Female

DRUGS (1)
  1. IBRANCE [Suspect]
     Active Substance: PALBOCICLIB
     Dosage: 125 MG, CYCLIC (Q DAY X21, 7 DAYS OFF)

REACTIONS (4)
  - Malaise [Unknown]
  - Influenza [Unknown]
  - Feeding disorder [Unknown]
  - Cough [Not Recovered/Not Resolved]
